FAERS Safety Report 4999441-3 (Version None)
Quarter: 2006Q2

REPORT INFORMATION
  Report Type: 
  Country: None (occurrence: None)
  Receive Date: 20060509
  Receipt Date: 20060509
  Transmission Date: 20061013
  Serious: Yes (Hospitalization, Disabling)
  Sender: FDA-Public Use
  Company Number: None

PATIENT
  Sex: Female

DRUGS (15)
  1. DROTRECOGIN ALPHA [Suspect]
     Indication: SEPSIS
     Dosage: 24 MCG/KG/HOUR
     Dates: start: 20051216, end: 20051220
  2. ACETAMINOPHEN [Concomitant]
  3. CEFEPIME [Concomitant]
  4. CEFAZOLIN [Concomitant]
  5. INSULIN [Concomitant]
  6. DOCUSATE SODIUM [Concomitant]
  7. FENTANYL [Concomitant]
  8. HYDROCORTISONE [Concomitant]
  9. METRONIDAZOLE [Concomitant]
  10. RANITIDINE [Concomitant]
  11. SENNA [Concomitant]
  12. NIMBEX [Concomitant]
  13. LORAZEPAM [Concomitant]
  14. NOREPINEPHRINE [Concomitant]
  15. VASOPRESSIN [Concomitant]

REACTIONS (5)
  - HAEMORRHAGE INTRACRANIAL [None]
  - INTRAVENTRICULAR HAEMORRHAGE [None]
  - LEG AMPUTATION [None]
  - NECROSIS [None]
  - SUBARACHNOID HAEMORRHAGE [None]
